FAERS Safety Report 5023422-7 (Version None)
Quarter: 2006Q2

REPORT INFORMATION
  Report Type: 
  Country: None (occurrence: None)
  Receive Date: 20060612
  Receipt Date: 20060518
  Transmission Date: 20061013
  Serious: Yes (Other)
  Sender: FDA-Public Use
  Company Number: PHEH2006US06512

PATIENT
  Age: 84 Year
  Sex: Female

DRUGS (1)
  1. LOTREL [Suspect]
     Indication: HYPERTENSION
     Dosage: 10/20 MG, QD
     Route: 048
     Dates: start: 20060401

REACTIONS (2)
  - ANURIA [None]
  - CYSTITIS [None]
